FAERS Safety Report 9130962 (Version 1)
Quarter: 2013Q1

REPORT INFORMATION
  Report Type: Other
  Country: CA (occurrence: CA)
  Receive Date: 20130301
  Receipt Date: 20130301
  Transmission Date: 20140127
  Serious: Yes (Other)
  Sender: FDA-Public Use
  Company Number: CA-SHIRE-ALL1-2013-01021

PATIENT
  Age: 22 Year
  Sex: 0
  Weight: 81 kg

DRUGS (1)
  1. ADDERALL XR [Suspect]
     Indication: PRODUCT USED FOR UNKNOWN INDICATION
     Dosage: 10 MG, 1X/DAY:QD
     Route: 048

REACTIONS (1)
  - Electrocardiogram QT prolonged [Unknown]
